FAERS Safety Report 16785895 (Version 2)
Quarter: 2019Q3

REPORT INFORMATION
  Report Type: Spontaneous
  Country: US (occurrence: US)
  Receive Date: 20190909
  Receipt Date: 20190909
  Transmission Date: 20191005
  Serious: Yes (Death, Hospitalization)
  Sender: FDA-Public Use
  Company Number: PHHY2019US208130

PATIENT
  Age: 58 Year
  Sex: Male

DRUGS (20)
  1. LINEZOLID. [Suspect]
     Active Substance: LINEZOLID
     Indication: BACTERAEMIA
     Dosage: 600 MG, Q12H
     Route: 065
  2. CLINDAMYCIN. [Suspect]
     Active Substance: CLINDAMYCIN
     Indication: BACTERAEMIA
     Dosage: 900 MG, Q8H
     Route: 042
  3. VANCOMYCIN [Suspect]
     Active Substance: VANCOMYCIN
     Indication: BACTERAEMIA
     Dosage: 1250 MG, UNK
     Route: 042
  4. VASOPRESSIN. [Concomitant]
     Active Substance: VASOPRESSIN
     Indication: HAEMODYNAMIC INSTABILITY
     Dosage: 0.02?0.04 UNITS/MINUTE ON DAYS 2?6
     Route: 065
  5. DOBUTAMINE [Concomitant]
     Active Substance: DOBUTAMINE HYDROCHLORIDE
     Indication: HAEMODYNAMIC INSTABILITY
     Dosage: 5?20 MG/KG/MIN ON DAYS 3?6
     Route: 065
  6. ASCORBIC ACID. [Concomitant]
     Active Substance: ASCORBIC ACID
     Indication: HAEMODYNAMIC INSTABILITY
     Dosage: 6000 MG, UNK
     Route: 042
  7. HYDROCORTISONE. [Concomitant]
     Active Substance: HYDROCORTISONE
     Indication: HAEMODYNAMIC INSTABILITY
     Dosage: 50 MG, Q6H
     Route: 042
  8. GENTAMICIN. [Suspect]
     Active Substance: GENTAMICIN
     Indication: BACTERAEMIA
     Dosage: 360 MG, QD
     Route: 042
  9. CIPROFLOXACIN. [Suspect]
     Active Substance: CIPROFLOXACIN
     Indication: BACTERAEMIA
     Dosage: 400 MG, Q12H
     Route: 042
  10. PIPERACILLIN/TAZOBACTAM [Suspect]
     Active Substance: PIPERACILLIN SODIUM\TAZOBACTAM SODIUM
     Dosage: 3.375 G, Q6H
     Route: 042
  11. VANCOMYCIN [Suspect]
     Active Substance: VANCOMYCIN
     Dosage: 1000 MG, Q12H
     Route: 042
  12. CEFTRIAXONE. [Suspect]
     Active Substance: CEFTRIAXONE
     Indication: BACTERAEMIA
     Dosage: 2 G, UNK
     Route: 042
  13. MEROPENEM. [Suspect]
     Active Substance: MEROPENEM
     Indication: BACTERAEMIA
     Dosage: 1000 MG, Q8H
     Route: 065
  14. MICAFUNGIN. [Suspect]
     Active Substance: MICAFUNGIN SODIUM
     Indication: BACTERAEMIA
     Dosage: 100 MG, Q24H
     Route: 042
  15. NOREPINEFRINE [Concomitant]
     Indication: HAEMODYNAMIC INSTABILITY
     Dosage: 2-200 MICROGRAM/MINUTE UNK, UNK
     Route: 065
  16. DOXYCYCLINE. [Suspect]
     Active Substance: DOXYCYCLINE
     Indication: BACTERAEMIA
     Dosage: 100 MG, UNK
     Route: 042
  17. PIPERACILLIN/TAZOBACTAM [Suspect]
     Active Substance: PIPERACILLIN SODIUM\TAZOBACTAM SODIUM
     Indication: BACTERAEMIA
     Dosage: 3.375 G, UNK
     Route: 042
  18. THIAMINE. [Concomitant]
     Active Substance: THIAMINE
     Indication: HAEMODYNAMIC INSTABILITY
     Dosage: 200 MG, Q12H ON DAY 3-6
     Route: 065
  19. ACICLOVIR [Suspect]
     Active Substance: ACYCLOVIR
     Indication: BACTERAEMIA
     Dosage: 650 MG, Q12H
     Route: 042
  20. PHENYLEPHRINE [Concomitant]
     Active Substance: PHENYLEPHRINE HYDROCHLORIDE
     Indication: HAEMODYNAMIC INSTABILITY
     Route: 065

REACTIONS (2)
  - Drug ineffective [Fatal]
  - Bacteraemia [Fatal]
